FAERS Safety Report 6997709-2 (Version None)
Quarter: 2010Q3

REPORT INFORMATION
  Report Type: 
  Country: None (occurrence: None)
  Receive Date: 20100918
  Receipt Date: 20091120
  Transmission Date: 20110219
  Serious: No
  Sender: FDA-Public Use
  Company Number: US-WYE-H12298009

PATIENT
  Sex: Female
  Weight: 95.34 kg

DRUGS (6)
  1. PRISTIQ [Suspect]
     Indication: DEPRESSION
     Route: 048
     Dates: start: 20091113
  2. MUCINEX [Concomitant]
  3. PRILOSEC [Concomitant]
  4. L-LYSINE [Concomitant]
  5. CYMBALTA [Concomitant]
  6. LAMICTAL [Concomitant]

REACTIONS (1)
  - URINE COLOUR ABNORMAL [None]
